FAERS Safety Report 8390195-X (Version None)
Quarter: 2012Q2

REPORT INFORMATION
  Report Type: 
  Country: None (occurrence: None)
  Receive Date: 20120529
  Receipt Date: 20120518
  Transmission Date: 20120825
  Serious: Yes (Other)
  Sender: FDA-Public Use
  Company Number: JP-VERTEX PHARMACEUTICALS INC.-AE-2012-003954

PATIENT
  Age: 56 Year
  Sex: Female

DRUGS (7)
  1. PEG-INTRON [Concomitant]
     Indication: HEPATITIS C
     Route: 058
     Dates: start: 20120208, end: 20120208
  2. TELAVIC (TELAPREVIR) [Suspect]
     Indication: HEPATITIS C
     Route: 048
     Dates: start: 20120208, end: 20120313
  3. PEG-INTRON [Concomitant]
     Route: 058
     Dates: start: 20120215, end: 20120228
  4. REBETOL [Concomitant]
     Indication: HEPATITIS C
     Route: 048
     Dates: start: 20120208, end: 20120228
  5. PEG-INTRON [Concomitant]
     Route: 058
     Dates: start: 20120306, end: 20120306
  6. REBETOL [Concomitant]
     Route: 048
     Dates: start: 20120228, end: 20120313
  7. PEG-INTRON [Concomitant]
     Route: 058
     Dates: start: 20120313, end: 20120313

REACTIONS (2)
  - NEUTROPHIL COUNT DECREASED [None]
  - HAEMOGLOBIN DECREASED [None]
